FAERS Safety Report 20124089 (Version 3)
Quarter: 2021Q4

REPORT INFORMATION
  Report Type: Spontaneous
  Country: GB (occurrence: GB)
  Receive Date: 20211129
  Receipt Date: 20211221
  Transmission Date: 20220303
  Serious: Yes (Death, Other)
  Sender: FDA-Public Use
  Company Number: GB-INCYTE CORPORATION-2021IN010943

PATIENT

DRUGS (2)
  1. ICLUSIG [Suspect]
     Active Substance: PONATINIB
     Indication: Blast crisis in myelogenous leukaemia
     Dosage: UNK
     Route: 065
     Dates: start: 202111
  2. IMATINIB [Concomitant]
     Active Substance: IMATINIB
     Indication: Chronic myeloid leukaemia
     Dosage: UNK
     Route: 065

REACTIONS (5)
  - Blast crisis in myelogenous leukaemia [Fatal]
  - Viral infection [Fatal]
  - Fungal infection [Fatal]
  - Bacterial infection [Fatal]
  - Wrong technique in product usage process [Unknown]

NARRATIVE: CASE EVENT DATE: 20211101
